FAERS Safety Report 19256985 (Version 2)
Quarter: 2021Q2

REPORT INFORMATION
  Report Type: Spontaneous
  Country: US (occurrence: US)
  Receive Date: 20210513
  Receipt Date: 20210520
  Transmission Date: 20210717
  Serious: Yes (Other)
  Sender: FDA-Public Use
  Company Number: US-RECKITT BENCKISER HEALTHCARE INT LIMITED-RB-87457-2021

PATIENT
  Age: 27 Year
  Sex: Female
  Weight: 58.05 kg

DRUGS (2)
  1. MUCINEX DM MAXIMUM STRENGTH [Suspect]
     Active Substance: DEXTROMETHORPHAN HYDROBROMIDE\GUAIFENESIN
     Indication: SEASONAL ALLERGY
     Dosage: 2400 MILLIGRAM, QD
     Route: 065
     Dates: start: 20210506, end: 20210506
  2. MUCINEX DM MAXIMUM STRENGTH [Suspect]
     Active Substance: DEXTROMETHORPHAN HYDROBROMIDE\GUAIFENESIN
     Indication: NASOPHARYNGITIS

REACTIONS (13)
  - Anxiety [Recovered/Resolved]
  - Product lot number issue [Unknown]
  - Restlessness [Recovered/Resolved]
  - Rash [Not Recovered/Not Resolved]
  - Accidental overdose [Recovered/Resolved]
  - Dizziness [Recovered/Resolved]
  - Malaise [Recovered/Resolved]
  - Insomnia [Recovered/Resolved]
  - Nausea [Recovered/Resolved]
  - Somnolence [Recovered/Resolved]
  - Contraindicated product administered [Recovered/Resolved]
  - Product packaging quantity issue [Unknown]
  - Product tampering [Unknown]

NARRATIVE: CASE EVENT DATE: 20210506
